FAERS Safety Report 21474055 (Version 4)
Quarter: 2023Q1

REPORT INFORMATION
  Report Type: Spontaneous
  Country: GB (occurrence: GB)
  Receive Date: 20221018
  Receipt Date: 20230103
  Transmission Date: 20230417
  Serious: Yes (Other)
  Sender: FDA-Public Use
  Company Number: GB-MYLANLABS-2022M1113337

PATIENT
  Age: 32 Year
  Sex: Female

DRUGS (2)
  1. CLOZARIL [Suspect]
     Active Substance: CLOZAPINE
     Indication: Schizophrenia
     Dosage: UNK
     Route: 048
     Dates: start: 20180219
  2. CLOZARIL [Suspect]
     Active Substance: CLOZAPINE
     Dosage: UNK
     Route: 048
     Dates: start: 20221019

REACTIONS (12)
  - Systemic inflammatory response syndrome [Unknown]
  - Pericardial effusion [Unknown]
  - Pain [Unknown]
  - C-reactive protein increased [Unknown]
  - Red cell distribution width increased [Not Recovered/Not Resolved]
  - Chills [Unknown]
  - Somnolence [Unknown]
  - Neutrophil count increased [Unknown]
  - Eosinophilia [Unknown]
  - Red blood cell count decreased [Unknown]
  - Haemoglobin decreased [Unknown]
  - Haematocrit decreased [Unknown]

NARRATIVE: CASE EVENT DATE: 20221201
